FAERS Safety Report 5265069-3 (Version None)
Quarter: 2007Q1

REPORT INFORMATION
  Report Type: 
  Country: None (occurrence: None)
  Receive Date: 20070314
  Receipt Date: 20070305
  Transmission Date: 20070707
  Serious: Yes (Hospitalization)
  Sender: FDA-Public Use
  Company Number: FRWYE733015JUN06

PATIENT
  Sex: Male

DRUGS (3)
  1. ENBREL [Suspect]
     Indication: RHEUMATOID ARTHRITIS
     Route: 058
     Dates: start: 20050101, end: 20060321
  2. ENBREL [Suspect]
     Route: 058
     Dates: start: 20060322
  3. METHOTREXATE [Suspect]
     Indication: RHEUMATOID ARTHRITIS
     Dosage: UNKNOWN
     Route: 030

REACTIONS (3)
  - HAEMOLYTIC URAEMIC SYNDROME [None]
  - MUSCLE HAEMORRHAGE [None]
  - STAPHYLOCOCCAL SEPSIS [None]
